FAERS Safety Report 18035168 (Version 1)
Quarter: 2020Q3

REPORT INFORMATION
  Report Type: Spontaneous
  Country: US (occurrence: US)
  Receive Date: 20200716
  Receipt Date: 20200716
  Transmission Date: 20201103
  Serious: Yes (Other)
  Sender: FDA-Public Use
  Company Number: None

PATIENT
  Age: 61 Year
  Sex: Female
  Weight: 50.4 kg

DRUGS (6)
  1. MULTI VITAMIN [Concomitant]
     Active Substance: VITAMINS
  2. ARTIFICIAL TEARS EYEDROPS [Concomitant]
  3. MESALAMINE (ORAL, ENEMA, SUPPOSITORY) [Concomitant]
  4. MESALAMINE DELAYED?RELEASE TABLETS, 1.2 G [Suspect]
     Active Substance: MESALAMINE
     Indication: COLITIS ULCERATIVE
     Dosage: ?          QUANTITY:4 TABLET(S);?
     Route: 048
     Dates: start: 20170620, end: 20200716
  5. CALCIUM SUPPLEMENT [Concomitant]
     Active Substance: CALCIUM
  6. RISEDRONATE [Concomitant]
     Active Substance: RISEDRONATE SODIUM

REACTIONS (6)
  - Product substitution issue [None]
  - Abdominal distension [None]
  - Flatulence [None]
  - Diarrhoea [None]
  - Colitis ulcerative [None]
  - Abdominal pain [None]

NARRATIVE: CASE EVENT DATE: 20180822
